FAERS Safety Report 22835467 (Version 7)
Quarter: 2023Q4

REPORT INFORMATION
  Report Type: Report from Study
  Country: US (occurrence: US)
  Receive Date: 20230818
  Receipt Date: 20231128
  Transmission Date: 20240110
  Serious: Yes (Other)
  Sender: FDA-Public Use
  Company Number: US-002147023-NVSC2023US179932

PATIENT
  Sex: Male

DRUGS (4)
  1. COSENTYX [Interacting]
     Active Substance: SECUKINUMAB
     Indication: Psoriasis
     Dosage: 150 MG, QMO
     Route: 058
  2. COSENTYX [Interacting]
     Active Substance: SECUKINUMAB
     Indication: Spinal osteoarthritis
     Dosage: 150 MG, QMO
     Route: 065
     Dates: start: 202308
  3. COSENTYX [Interacting]
     Active Substance: SECUKINUMAB
     Dosage: 150 MG, QMO
     Route: 058
     Dates: start: 20230823
  4. PENICILLIN [Interacting]
     Active Substance: PENICILLIN
     Indication: Product used for unknown indication
     Dosage: UNK
     Route: 065

REACTIONS (23)
  - Ankylosing spondylitis [Unknown]
  - Arthritis [Recovering/Resolving]
  - Lip and/or oral cavity cancer [Unknown]
  - Chronic obstructive pulmonary disease [Unknown]
  - Cystitis [Unknown]
  - Pain [Unknown]
  - Fatigue [Unknown]
  - Lip swelling [Unknown]
  - Nasopharyngitis [Unknown]
  - Tonsillitis [Unknown]
  - Oropharyngeal pain [Unknown]
  - Pharyngitis [Unknown]
  - Drug interaction [Unknown]
  - Dry skin [Not Recovered/Not Resolved]
  - Asthenia [Not Recovered/Not Resolved]
  - Pruritus [Not Recovered/Not Resolved]
  - Change of bowel habit [Not Recovered/Not Resolved]
  - Visual impairment [Not Recovered/Not Resolved]
  - Skin disorder [Not Recovered/Not Resolved]
  - Pyrexia [Recovered/Resolved]
  - Constipation [Recovered/Resolved]
  - Back pain [Not Recovered/Not Resolved]
  - Acne [Recovered/Resolved]
